FAERS Safety Report 6663170-0 (Version None)
Quarter: 2010Q1

REPORT INFORMATION
  Report Type: 
  Country: None (occurrence: None)
  Receive Date: 20100331
  Receipt Date: 20100331
  Transmission Date: 20100710
  Serious: Yes (Other)
  Sender: FDA-Public Use
  Company Number: None

PATIENT
  Sex: Female
  Weight: 41.7309 kg

DRUGS (1)
  1. TOPAMAX [Suspect]
     Indication: MIGRAINE
     Dosage: 200MG

REACTIONS (1)
  - VOMITING [None]
